FAERS Safety Report 9118071 (Version 4)
Quarter: 2013Q1

REPORT INFORMATION
  Report Type: Spontaneous
  Country: US (occurrence: US)
  Receive Date: 20130209
  Receipt Date: 20130328
  Transmission Date: 20140127
  Serious: Yes (Hospitalization)
  Sender: FDA-Public Use
  Company Number: US-B.I. PHARMACEUTICALS,INC./RIDGEFIELD-2013-BI-03300BP

PATIENT
  Age: 86 None
  Sex: Male
  Weight: 76.2 kg

DRUGS (15)
  1. SIMVASTATIN [Concomitant]
     Route: 048
  2. TAMSULOSIN [Concomitant]
     Dosage: 0.4 MG
     Route: 048
  3. CALCIUM [Concomitant]
     Dosage: 600 MG
     Route: 048
  4. FUROSEMIDE [Concomitant]
     Dosage: 80 MG
     Route: 048
  5. ACETAMINOPHEN [Concomitant]
     Route: 048
  6. FINASTERIDE [Concomitant]
     Dosage: 5 MG
  7. LOSARTAN [Concomitant]
     Dosage: 25 MG
  8. TRAVATAN [Concomitant]
  9. AMOXICILLIN [Concomitant]
     Dosage: 2000 MG
  10. CARVEDILOL [Concomitant]
     Dosage: 50 MG
  11. SPIRIVA [Suspect]
     Indication: EMPHYSEMA
     Dosage: 18 MCG
     Route: 055
  12. SPIRIVA [Suspect]
     Indication: CHRONIC OBSTRUCTIVE PULMONARY DISEASE
  13. FLOMAX EYE DROPS [Concomitant]
     Dosage: 0.4 MG
  14. VITAMIN D [Concomitant]
     Dosage: 1000 U
     Route: 048
  15. WARFARIN [Concomitant]
     Dosage: 5 MG
     Route: 048

REACTIONS (4)
  - Cardiac failure congestive [Unknown]
  - Pulmonary oedema [Not Recovered/Not Resolved]
  - Dyspnoea [Not Recovered/Not Resolved]
  - Product quality issue [Recovered/Resolved]
